FAERS Safety Report 22630870 (Version 1)
Quarter: 2023Q2

REPORT INFORMATION
  Report Type: Spontaneous
  Country: US (occurrence: US)
  Receive Date: 20230622
  Receipt Date: 20230622
  Transmission Date: 20230722
  Serious: No
  Sender: FDA-Public Use
  Company Number: US-GILEAD-2023-0633737

PATIENT
  Age: 59 Year
  Sex: Female
  Weight: 43.537 kg

DRUGS (1)
  1. TRODELVY [Suspect]
     Active Substance: SACITUZUMAB GOVITECAN-HZIY
     Indication: Triple negative breast cancer
     Dosage: 452 MG
     Route: 065

REACTIONS (2)
  - Heart rate increased [Unknown]
  - Generalised oedema [Unknown]
